FAERS Safety Report 5660955-4 (Version None)
Quarter: 2008Q1

REPORT INFORMATION
  Report Type: 
  Country: None (occurrence: None)
  Receive Date: 20080311
  Receipt Date: 20080229
  Transmission Date: 20080703
  Serious: Yes (Death, Hospitalization)
  Sender: FDA-Public Use
  Company Number: JP-PFIZER INC-2007102666

PATIENT
  Sex: Male
  Weight: 50 kg

DRUGS (9)
  1. ZYVOX [Suspect]
     Indication: STAPHYLOCOCCAL INFECTION
     Route: 042
     Dates: start: 20071130, end: 20071219
  2. ZYVOX [Suspect]
     Route: 042
     Dates: start: 20071220, end: 20071225
  3. VANCOMYCIN [Concomitant]
  4. OMEPRAL [Concomitant]
     Route: 048
  5. SIGMART [Concomitant]
     Route: 048
  6. MUCOSTA [Concomitant]
     Route: 048
  7. ALOSENN [Concomitant]
     Route: 048
  8. GLYSENNID [Concomitant]
     Route: 048
  9. BIOFERMIN R [Concomitant]
     Route: 048

REACTIONS (3)
  - DISSEMINATED INTRAVASCULAR COAGULATION [None]
  - PANCYTOPENIA [None]
  - SEPSIS [None]
